FAERS Safety Report 13553966 (Version 1)
Quarter: 2017Q2

REPORT INFORMATION
  Report Type: Spontaneous
  Country: FR (occurrence: FR)
  Receive Date: 20170517
  Receipt Date: 20170517
  Transmission Date: 20170830
  Serious: Yes (Other)
  Sender: FDA-Public Use
  Company Number: FR-GLAXOSMITHKLINE-FR2017070720

PATIENT
  Age: 90 Year
  Sex: Female

DRUGS (2)
  1. ACITRETIN. [Suspect]
     Active Substance: ACITRETIN
     Indication: PUSTULAR PSORIASIS
     Dosage: 40 MG, QD
  2. ACITRETIN. [Suspect]
     Active Substance: ACITRETIN
     Dosage: PROGRESSIVELY TAPERED DOWN

REACTIONS (2)
  - Contraindicated product administered [Unknown]
  - Cholestasis [Recovered/Resolved]
